FAERS Safety Report 9081594 (Version 1)
Quarter: 2013Q1

REPORT INFORMATION
  Report Type: Report from Study
  Country: US (occurrence: US)
  Receive Date: 20130130
  Receipt Date: 20130130
  Transmission Date: 20140127
  Serious: No
  Sender: FDA-Public Use
  Company Number: US-ABBOTT-12P-163-0959532-00

PATIENT
  Age: 65 Year
  Sex: Male

DRUGS (12)
  1. HUMIRA 40 MG/0.8 ML PEN [Suspect]
     Indication: PSORIATIC ARTHROPATHY
     Route: 058
  2. PREDNISONE [Concomitant]
     Indication: PSORIATIC ARTHROPATHY
     Dosage: 5MG DAILY
  3. METHOTREXATE [Concomitant]
     Indication: PRODUCT USED FOR UNKNOWN INDICATION
     Route: 048
  4. IBUPROFEN [Concomitant]
     Indication: PSORIATIC ARTHROPATHY
     Dosage: LESS THAN 2400MG EVERY DAY
  5. LEUC [Concomitant]
     Indication: PSORIATIC ARTHROPATHY
  6. LEUCOVORIN [Concomitant]
     Indication: PRODUCT USED FOR UNKNOWN INDICATION
     Dosage: 5MG WEEKLY THE MORNING AFTER METHOTREXATE WAS TAKEN
     Route: 048
  7. METOPROLOL [Concomitant]
     Indication: HYPERTENSION
     Dosage: 25MG DAILY
     Route: 048
  8. LIPITOR [Concomitant]
     Indication: BLOOD CHOLESTEROL INCREASED
     Dosage: 20MG DAILY
     Route: 048
  9. ASPIRIN [Concomitant]
     Indication: CARDIOVASCULAR EVENT PROPHYLAXIS
     Dosage: 81MG DAILY
     Route: 048
  10. VI-CAPS [Concomitant]
     Indication: VITAMIN SUPPLEMENTATION
  11. FOLIC ACID [Concomitant]
     Indication: VITAMIN SUPPLEMENTATION
     Dosage: 1MG DAILY
     Route: 048
  12. OMEPRAZOLE [Concomitant]
     Indication: GASTROOESOPHAGEAL REFLUX DISEASE
     Dosage: 20MG DAILY
     Route: 048

REACTIONS (2)
  - Incorrect dose administered [Not Recovered/Not Resolved]
  - Injection site induration [Not Recovered/Not Resolved]
